FAERS Safety Report 15951250 (Version 1)
Quarter: 2019Q1

REPORT INFORMATION
  Report Type: Spontaneous
  Country: US (occurrence: US)
  Receive Date: 20190212
  Receipt Date: 20190212
  Transmission Date: 20190417
  Serious: Yes (Other)
  Sender: FDA-Public Use
  Company Number: US-MYLANLABS-2019M1012575

PATIENT
  Age: 28 Year
  Sex: Male

DRUGS (2)
  1. TRIAMCINOLONE [Suspect]
     Active Substance: TRIAMCINOLONE
     Indication: CHALAZION
     Dosage: 0.5ML OF 10MG/ML DOSE
     Route: 026
  2. ERYTHROMYCIN. [Suspect]
     Active Substance: ERYTHROMYCIN
     Dosage: APPLIED IN THE EYE
     Route: 050

REACTIONS (3)
  - Treatment failure [Unknown]
  - Chorioretinopathy [Recovering/Resolving]
  - Visual acuity reduced [Recovering/Resolving]
